FAERS Safety Report 24068829 (Version 1)
Quarter: 2024Q3

REPORT INFORMATION
  Report Type: Spontaneous
  Country: IN (occurrence: IN)
  Receive Date: 20240710
  Receipt Date: 20240710
  Transmission Date: 20241017
  Serious: No
  Sender: ROCHE
  Company Number: IN-ROCHE-3542316

PATIENT
  Age: 82 Year
  Sex: Male

DRUGS (4)
  1. VABYSMO [Suspect]
     Active Substance: FARICIMAB\FARICIMAB-SVOA
     Indication: Choroidal neovascularisation
     Dosage: BOTH EYES
     Route: 047
  2. EYLEA [Concomitant]
     Active Substance: AFLIBERCEPT
     Dosage: 11-APR-2022, 1-AUG-22
     Dates: start: 20220131
  3. BROLUCIZUMAB [Concomitant]
     Active Substance: BROLUCIZUMAB
     Dosage: 13-FEB-2023, 21-AUG-2023
     Dates: start: 20221031
  4. AVASTIN [Concomitant]
     Active Substance: BEVACIZUMAB
     Dates: start: 20231104

REACTIONS (2)
  - Off label use [Unknown]
  - No adverse event [Unknown]
